FAERS Safety Report 7717477-6 (Version None)
Quarter: 2011Q3

REPORT INFORMATION
  Report Type: 
  Country: None (occurrence: None)
  Receive Date: 20110824
  Receipt Date: 20110815
  Transmission Date: 20111222
  Serious: Yes (Hospitalization)
  Sender: FDA-Public Use
  Company Number: 1012367

PATIENT
  Age: 42 Year
  Sex: Female

DRUGS (5)
  1. DULOXETIME HYDROCHLORIDE [Suspect]
     Indication: DEPRESSION
     Dosage: 20 MG, 60 MG
  2. MIRTAZAPINE [Concomitant]
  3. OPIOIDS [Concomitant]
  4. QUETIAPINE [Concomitant]
  5. KETAMINE HCL [Suspect]
     Indication: COMPLEX REGIONAL PAIN SYNDROME
     Dosage: 0.1 TO 0.2 MG/KG, INTRAVENOUS DRIP
     Route: 041

REACTIONS (9)
  - MANIA [None]
  - REFUSAL OF TREATMENT BY PATIENT [None]
  - SUICIDAL IDEATION [None]
  - SELF-MEDICATION [None]
  - PARANOIA [None]
  - DRUG INTERACTION [None]
  - SEDATION [None]
  - PSYCHOTIC DISORDER [None]
  - FLIGHT OF IDEAS [None]
